FAERS Safety Report 20719663 (Version 4)
Quarter: 2022Q3

REPORT INFORMATION
  Report Type: Spontaneous
  Country: US (occurrence: US)
  Receive Date: 20220418
  Receipt Date: 20220704
  Transmission Date: 20221027
  Serious: Yes (Hospitalization, Other)
  Sender: FDA-Public Use
  Company Number: US-ASTELLAS-2022US013711

PATIENT
  Age: 69 Year
  Sex: Male

DRUGS (12)
  1. REGADENOSON [Suspect]
     Active Substance: REGADENOSON
     Indication: Scan myocardial perfusion
     Dosage: 4 ML, OTHER (ONCE) (SINGLE-DOSE PRE-FILLED SYRINGE: 0.4 MG/5 ML)
     Route: 042
     Dates: start: 20220225, end: 20220225
  2. REGADENOSON [Suspect]
     Active Substance: REGADENOSON
     Indication: Scan myocardial perfusion
     Dosage: 4 ML, OTHER (ONCE) (SINGLE-DOSE PRE-FILLED SYRINGE: 0.4 MG/5 ML)
     Route: 042
     Dates: start: 20220225, end: 20220225
  3. REGADENOSON [Suspect]
     Active Substance: REGADENOSON
     Indication: Scan myocardial perfusion
     Dosage: 4 ML, OTHER (ONCE) (SINGLE-DOSE PRE-FILLED SYRINGE: 0.4 MG/5 ML)
     Route: 042
     Dates: start: 20220225, end: 20220225
  4. REGADENOSON [Suspect]
     Active Substance: REGADENOSON
     Indication: Scan myocardial perfusion
     Dosage: 4 ML, OTHER (ONCE) (SINGLE-DOSE PRE-FILLED SYRINGE: 0.4 MG/5 ML)
     Route: 042
     Dates: start: 20220225, end: 20220225
  5. AMINOPHYLLINE [Suspect]
     Active Substance: AMINOPHYLLINE
     Indication: Product used for unknown indication
     Route: 065
     Dates: start: 20220225
  6. LEVOTHYROXINE [Concomitant]
     Active Substance: LEVOTHYROXINE
     Indication: Product used for unknown indication
     Dosage: 50 ?G, ONCE DAILY (4X/WEEK)
     Route: 048
  7. LEVOTHYROXINE [Concomitant]
     Active Substance: LEVOTHYROXINE
     Dosage: 75 ?G, ONCE DAILY (3X/WEEK)
     Route: 048
  8. PROTONIX [Concomitant]
     Active Substance: PANTOPRAZOLE SODIUM
     Indication: Product used for unknown indication
     Route: 048
  9. WELLBUTRIN [Concomitant]
     Active Substance: BUPROPION HYDROCHLORIDE
     Indication: Product used for unknown indication
     Route: 048
  10. VIIBRYD [Concomitant]
     Active Substance: VILAZODONE HYDROCHLORIDE
     Indication: Product used for unknown indication
     Route: 048
     Dates: start: 202005
  11. VITAMIN D3 [Concomitant]
     Active Substance: CHOLECALCIFEROL
     Indication: Product used for unknown indication
     Route: 048
  12. VITAMIN B COMPLEX [Concomitant]
     Active Substance: CYANOCOBALAMIN\DEXPANTHENOL\NIACINAMIDE\PYRIDOXINE HYDROCHLORIDE\RIBOFLAVIN 5^-PHOSPHATE SODIUM\THIA
     Indication: Product used for unknown indication
     Dosage: UNK UNK, ONCE DAILY
     Route: 048

REACTIONS (8)
  - Blood glucose decreased [Recovered/Resolved]
  - Nausea [Recovered/Resolved]
  - Unresponsive to stimuli [Recovered/Resolved]
  - Peripheral coldness [Recovered/Resolved]
  - Poor peripheral circulation [Recovered/Resolved]
  - Hypotension [Recovered/Resolved]
  - Ventricular extrasystoles [Recovered/Resolved]
  - Nodal rhythm [Recovered/Resolved]

NARRATIVE: CASE EVENT DATE: 20220225
